FAERS Safety Report 6427169-1 (Version None)
Quarter: 2009Q4

REPORT INFORMATION
  Report Type: 
  Country: None (occurrence: None)
  Receive Date: 20091026
  Receipt Date: 20090805
  Transmission Date: 20100525
  Serious: No
  Sender: FDA-Public Use
  Company Number: US-000707

PATIENT
  Sex: Male

DRUGS (1)
  1. DEGARELIX 240 MG [Suspect]
     Indication: PROSTATE CANCER
     Dosage: (SUBCUTANEOUS)
     Route: 058
     Dates: start: 20090705

REACTIONS (1)
  - INJECTION SITE PAIN [None]
